FAERS Safety Report 9109109 (Version 1)
Quarter: 2013Q1

REPORT INFORMATION
  Report Type: Spontaneous
  Country: FR (occurrence: FR)
  Receive Date: 20130222
  Receipt Date: 20130222
  Transmission Date: 20140127
  Serious: Yes (Hospitalization)
  Sender: FDA-Public Use
  Company Number: FR-GLAXOSMITHKLINE-B0864967A

PATIENT
  Age: 85 Year
  Sex: Male
  Weight: 68 kg

DRUGS (5)
  1. AVODART [Suspect]
     Indication: BENIGN PROSTATIC HYPERPLASIA
     Dosage: .5MG PER DAY
     Route: 048
     Dates: start: 20130121, end: 20130204
  2. PERMIXON [Suspect]
     Indication: BENIGN PROSTATIC HYPERPLASIA
     Dosage: 160MG PER DAY
     Route: 048
     Dates: start: 20130121, end: 20130204
  3. IXPRIM [Concomitant]
     Indication: OSTEOARTHRITIS
     Dosage: 1UNIT THREE TIMES PER DAY
     Route: 048
     Dates: start: 20130118
  4. EUPANTOL [Concomitant]
     Indication: GASTRITIS
     Dosage: 40MG PER DAY
     Route: 048
     Dates: start: 20130102
  5. GAVISCON [Concomitant]
     Indication: GASTROOESOPHAGEAL REFLUX DISEASE
     Dosage: 10ML THREE TIMES PER DAY
     Route: 048
     Dates: start: 20130131

REACTIONS (3)
  - Urticaria [Recovering/Resolving]
  - Conjunctivitis allergic [Recovering/Resolving]
  - Rash maculo-papular [Recovering/Resolving]
